FAERS Safety Report 23604017 (Version 1)
Quarter: 2024Q1

REPORT INFORMATION
  Report Type: Spontaneous
  Country: PL (occurrence: PL)
  Receive Date: 20240307
  Receipt Date: 20240307
  Transmission Date: 20240410
  Serious: Yes (Other)
  Sender: FDA-Public Use
  Company Number: PL-AMGEN-POLSP2024043796

PATIENT
  Age: 75 Year
  Sex: Female

DRUGS (4)
  1. PROLIA [Suspect]
     Active Substance: DENOSUMAB
     Indication: Osteoporosis
     Dosage: IT SHOULD BE ONCE EVERY SIX MONTHS, BUT IT IS LESS OFTEN,THE PATIENT TOOK 2 DOSES
     Route: 058
  2. LYRICA [Suspect]
     Active Substance: PREGABALIN
     Indication: Product used for unknown indication
     Dosage: 150 MILLIGRAM, QD, THE DRUG WAS USED 4 YEARS AGO (IT IS NOT KNOWN WHETHER IT IS STILL)
     Route: 065
  3. PREDNISONE [Suspect]
     Active Substance: PREDNISONE
     Indication: Bone marrow transplant
     Dosage: 5 MILLIGRAM, QD, THE DRUG WAS USED 3 YEARS AGO (IT IS NOT KNOWN WHETHER IT IS STILL)
     Route: 048
  4. Meteospasmyl [Concomitant]
     Dosage: 1 DOSAGE FORM, QD (THE POWER OF THE DRUG: 60MG + 300MG)

REACTIONS (7)
  - Pain of skin [Not Recovered/Not Resolved]
  - Muscle spasms [Not Recovered/Not Resolved]
  - Bone pain [Not Recovered/Not Resolved]
  - Muscle rigidity [Not Recovered/Not Resolved]
  - Insomnia [Not Recovered/Not Resolved]
  - Tendon pain [Not Recovered/Not Resolved]
  - Arthralgia [Not Recovered/Not Resolved]
